FAERS Safety Report 7822697-6 (Version None)
Quarter: 2011Q4

REPORT INFORMATION
  Report Type: 
  Country: None (occurrence: None)
  Receive Date: 20111018
  Receipt Date: 20111007
  Transmission Date: 20120403
  Serious: Yes (Hospitalization)
  Sender: FDA-Public Use
  Company Number: FR-MERCK-1110FRA00027

PATIENT
  Age: 58 Year
  Sex: Female

DRUGS (18)
  1. METFORMIN HCL [Suspect]
     Route: 048
     Dates: start: 20110812, end: 20110812
  2. LEVOFLOXACIN [Suspect]
     Indication: SEPSIS
     Route: 048
     Dates: start: 20110812, end: 20110101
  3. TRAMADOL HYDROCHLORIDE [Concomitant]
     Route: 065
  4. ESOMEPRAZOLE MAGNESIUM [Concomitant]
     Route: 065
  5. ETORICOXIB [Concomitant]
     Route: 048
  6. METFORMIN HCL [Suspect]
     Indication: TYPE 2 DIABETES MELLITUS
     Route: 048
     Dates: start: 20110809, end: 20110811
  7. ACETAMINOPHEN [Concomitant]
     Route: 065
  8. ROSUVASTATIN CALCIUM [Concomitant]
     Route: 065
  9. PROPRANOLOL HYDROCHLORIDE [Concomitant]
     Route: 065
  10. AMLODIPINE BESYLATE [Concomitant]
     Route: 065
  11. ESCITALOPRAM OXALATE [Concomitant]
     Route: 065
  12. SPIRONOLACTONE [Concomitant]
     Route: 065
  13. METFORMIN HCL [Suspect]
     Route: 048
     Dates: start: 20110813
  14. CEFTRIAXONE SODIUM [Suspect]
     Indication: PSOAS ABSCESS
     Route: 042
     Dates: start: 20110805, end: 20110101
  15. FUROSEMIDE [Concomitant]
     Route: 065
  16. ALLOPURINOL [Concomitant]
     Route: 065
  17. JANUVIA [Suspect]
     Indication: TYPE 2 DIABETES MELLITUS
     Route: 048
     Dates: start: 20110809, end: 20110812
  18. POTASSIUM CHLORIDE [Concomitant]
     Route: 065

REACTIONS (1)
  - TOXIC ENCEPHALOPATHY [None]
